FAERS Safety Report 24625162 (Version 1)
Quarter: 2024Q4

REPORT INFORMATION
  Report Type: Spontaneous
  Country: CN (occurrence: CN)
  Receive Date: 20241115
  Receipt Date: 20241115
  Transmission Date: 20250115
  Serious: Yes (Life-Threatening)
  Sender: BAYER HEALTHCARE PHARMACEUTICALS INC.
  Company Number: CN-BAYER-2024A163225

PATIENT
  Age: 57 Year
  Sex: Male

DRUGS (2)
  1. ULTRAVIST [Suspect]
     Active Substance: IOPROMIDE
     Indication: Computerised tomogram head
     Dosage: 76.89 G, ONCE
     Route: 041
     Dates: start: 20241109, end: 20241109
  2. ULTRAVIST [Suspect]
     Active Substance: IOPROMIDE
     Indication: Computerised tomogram neck

REACTIONS (11)
  - Anaphylactic shock [Recovered/Resolved]
  - Palpitations [Recovered/Resolved]
  - Asthenia [Recovered/Resolved]
  - Rash erythematous [Recovered/Resolved]
  - Hyperhidrosis [Recovered/Resolved]
  - Skin temperature increased [Recovered/Resolved]
  - Cyanosis [Recovered/Resolved]
  - Mouth swelling [Recovered/Resolved]
  - Lip swelling [Recovered/Resolved]
  - Blood pressure decreased [None]
  - Respiratory rate increased [None]

NARRATIVE: CASE EVENT DATE: 20241109
